FAERS Safety Report 23706800 (Version 1)
Quarter: 2024Q2

REPORT INFORMATION
  Report Type: Spontaneous
  Country: US (occurrence: US)
  Receive Date: 20240404
  Receipt Date: 20240404
  Transmission Date: 20240716
  Serious: No
  Sender: FDA-Public Use
  Company Number: US-SA-SAC20240402000722

PATIENT
  Sex: Male

DRUGS (10)
  1. DUPIXENT [Suspect]
     Active Substance: DUPILUMAB
     Indication: Neurodermatitis
     Dosage: 300 MG, QOW
     Route: 058
  2. ALBUTEROL SULFATE [Concomitant]
     Active Substance: ALBUTEROL SULFATE
  3. ALLOPURINOL [Concomitant]
     Active Substance: ALLOPURINOL
  4. ASPIRIN [Concomitant]
     Active Substance: ASPIRIN
  5. CARVEDILOL [Concomitant]
     Active Substance: CARVEDILOL
  6. ENTRESTO [Concomitant]
     Active Substance: SACUBITRIL\VALSARTAN
  7. INDOMETHACIN [Concomitant]
     Active Substance: INDOMETHACIN
  8. VITAMINS NOS [Concomitant]
     Active Substance: VITAMINS
  9. TORSEMIDE [Concomitant]
     Active Substance: TORSEMIDE
  10. VITAMIN C [Concomitant]
     Active Substance: ASCORBIC ACID

REACTIONS (2)
  - Pain [Not Recovered/Not Resolved]
  - Arthralgia [Not Recovered/Not Resolved]
